FAERS Safety Report 14305074 (Version 1)
Quarter: 2017Q4

REPORT INFORMATION
  Report Type: Spontaneous
  Country: US (occurrence: US)
  Receive Date: 20171219
  Receipt Date: 20171219
  Transmission Date: 20180321
  Serious: Yes (Hospitalization, Other)
  Sender: FDA-Public Use
  Company Number: US-OTSUKA-12411815

PATIENT
  Age: 28 Year
  Sex: Male
  Weight: 72.56 kg

DRUGS (4)
  1. ABILIFY [Suspect]
     Active Substance: ARIPIPRAZOLE
     Indication: BIPOLAR DISORDER
     Dosage: INITIAL DOSAGE WAS 7.5MG DAILY (19-JUN), INCREASED TO 7.5MG BID ON 09-JUL-2003.
     Route: 048
     Dates: start: 20030619, end: 200307
  2. QUETIAPINE. [Concomitant]
     Active Substance: QUETIAPINE
     Indication: PRODUCT USED FOR UNKNOWN INDICATION
     Dosage: ON 19-JUN-2003 DOSAGE WAS DECREASED TO 100 MG DAILY AND D/C ON 09-JUL-2003.
     Route: 065
     Dates: end: 20030709
  3. LORAZEPAM. [Concomitant]
     Active Substance: LORAZEPAM
     Indication: PRODUCT USED FOR UNKNOWN INDICATION
     Dosage: 0.5 MG, QD
     Route: 065
  4. ZYRTEC [Concomitant]
     Active Substance: CETIRIZINE HYDROCHLORIDE
     Indication: PRODUCT USED FOR UNKNOWN INDICATION
     Dosage: 10 MG, QD
     Route: 065

REACTIONS (10)
  - Altered visual depth perception [Recovered/Resolved]
  - Dizziness [Recovered/Resolved]
  - Incoherent [Recovered/Resolved]
  - Extrapyramidal disorder [Recovered/Resolved]
  - Hyperhidrosis [Recovered/Resolved]
  - Drooling [Recovered/Resolved]
  - Bipolar disorder [Unknown]
  - Dysuria [Unknown]
  - Disorientation [Recovered/Resolved]
  - Hypersensitivity [Recovered/Resolved]

NARRATIVE: CASE EVENT DATE: 20030711
